FAERS Safety Report 7973863-0 (Version None)
Quarter: 2011Q4

REPORT INFORMATION
  Report Type: 
  Country: None (occurrence: None)
  Receive Date: 20111209
  Receipt Date: 20111201
  Transmission Date: 20120403
  Serious: Yes (Other)
  Sender: FDA-Public Use
  Company Number: 2011MA017277

PATIENT
  Sex: Male

DRUGS (1)
  1. CITALOPRAM HYDROBROMIDE [Suspect]
     Indication: DEPRESSION
     Dosage: BID, PO
     Route: 048
     Dates: start: 20111129, end: 20111201

REACTIONS (7)
  - ARTHRALGIA [None]
  - VOMITING [None]
  - HALLUCINATION, VISUAL [None]
  - CHILLS [None]
  - HYPERHIDROSIS [None]
  - NAUSEA [None]
  - INSOMNIA [None]
